FAERS Safety Report 19254054 (Version 2)
Quarter: 2021Q3

REPORT INFORMATION
  Report Type: Spontaneous
  Country: US (occurrence: US)
  Receive Date: 20210513
  Receipt Date: 20210930
  Transmission Date: 20211014
  Serious: No
  Sender: FDA-Public Use
  Company Number: US-SA-2021SA156470

PATIENT
  Age: 15 Year
  Sex: Male
  Weight: 90.7 kg

DRUGS (12)
  1. HEPARIN [Concomitant]
     Active Substance: HEPARIN SODIUM
  2. NAPROXEN. [Concomitant]
     Active Substance: NAPROXEN
  3. LORATADINE. [Concomitant]
     Active Substance: LORATADINE
  4. NORMAL SALINE [Concomitant]
     Active Substance: SODIUM CHLORIDE
  5. VYVANSE [Concomitant]
     Active Substance: LISDEXAMFETAMINE DIMESYLATE
  6. TYLENOL WITH CODEINE [Concomitant]
     Active Substance: ACETAMINOPHEN\CODEINE PHOSPHATE
  7. IRBESARTAN. [Concomitant]
     Active Substance: IRBESARTAN
  8. NORCO [Concomitant]
     Active Substance: ACETAMINOPHEN\HYDROCODONE BITARTRATE
  9. FLUTICASONE. [Concomitant]
     Active Substance: FLUTICASONE
  10. ALDURAZYME [Suspect]
     Active Substance: LARONIDASE
     Indication: MUCOPOLYSACCHARIDOSIS
     Dosage: 52.2 MG, QW (2.9MG/5ML )
     Route: 042
     Dates: start: 20100128
  11. DIPHENHYDRAMINE. [Concomitant]
     Active Substance: DIPHENHYDRAMINE
  12. EPINEPHRINE. [Concomitant]
     Active Substance: EPINEPHRINE

REACTIONS (2)
  - Cartilage operation [Unknown]
  - Productive cough [Unknown]

NARRATIVE: CASE EVENT DATE: 20210422
